FAERS Safety Report 5281176-3 (Version None)
Quarter: 2007Q1

REPORT INFORMATION
  Report Type: 
  Country: None (occurrence: None)
  Receive Date: 20070323
  Receipt Date: 20070307
  Transmission Date: 20070707
  Serious: Yes (Hospitalization)
  Sender: FDA-Public Use
  Company Number: 2007JP000979

PATIENT
  Age: 77 Year
  Sex: Male

DRUGS (6)
  1. VESICARE [Suspect]
     Dosage: 5 MG, UID/QD, ORAL, 10 MG, D, ORAL
     Route: 048
     Dates: start: 20061216, end: 20070105
  2. VESICARE [Suspect]
     Dosage: 5 MG, UID/QD, ORAL, 10 MG, D, ORAL
     Route: 048
     Dates: start: 20070106, end: 20070222
  3. HAMAL (TAMSULOSIN) ORODISPERSABLE CR TABLET [Concomitant]
  4. MICARDIS [Concomitant]
  5. MUCOSTA (REBAMIPIDE) [Concomitant]
  6. EXCELASE (ENZYMES NOS) [Concomitant]

REACTIONS (2)
  - BLOOD CHOLINESTERASE DECREASED [None]
  - PARKINSONISM [None]
